FAERS Safety Report 10165903 (Version 2)
Quarter: 2014Q2

REPORT INFORMATION
  Report Type: Spontaneous
  Country: US (occurrence: US)
  Receive Date: 20140510
  Receipt Date: 20140510
  Transmission Date: 20141212
  Serious: No
  Sender: FDA-Public Use
  Company Number: US-BRISTOL-MYERS SQUIBB COMPANY-18577981

PATIENT
  Age: 62 Year
  Sex: Male
  Weight: 103.86 kg

DRUGS (4)
  1. BYDUREON 2MG VIAL + SYRINGE [Suspect]
     Indication: TYPE 2 DIABETES MELLITUS
     Dosage: 18DEC12-1JAN13?LAST DOSE ON 6 WEEKS AGO
     Route: 058
     Dates: start: 20121218, end: 2013
  2. METFORMIN HCL [Suspect]
     Indication: TYPE 2 DIABETES MELLITUS
     Route: 048
     Dates: start: 20121227
  3. JANUMET [Concomitant]
     Indication: TYPE 2 DIABETES MELLITUS
     Route: 048
     Dates: end: 20121219
  4. SYNTHROID [Concomitant]

REACTIONS (5)
  - Injection site nodule [Not Recovered/Not Resolved]
  - Injection site pruritus [Not Recovered/Not Resolved]
  - Drug ineffective [Recovering/Resolving]
  - Gastrointestinal disorder [Unknown]
  - Weight decreased [Unknown]
